FAERS Safety Report 24662121 (Version 1)
Quarter: 2024Q4

REPORT INFORMATION
  Report Type: Spontaneous
  Country: BR (occurrence: BR)
  Receive Date: 20241125
  Receipt Date: 20241125
  Transmission Date: 20250114
  Serious: Yes (Other)
  Sender: ORGANON
  Company Number: BR-ORGANON-O2410BRA002207

PATIENT
  Age: 24 Year
  Sex: Female
  Weight: 64 kg

DRUGS (1)
  1. ETONOGESTREL [Suspect]
     Active Substance: ETONOGESTREL
     Indication: Contraception
     Dosage: 1 IMPLANT IN LEFT ARM
     Route: 059
     Dates: start: 20231213, end: 20241030

REACTIONS (5)
  - Heavy menstrual bleeding [Recovered/Resolved]
  - Heavy menstrual bleeding [Recovered/Resolved]
  - Anaemia [Recovered/Resolved]
  - Menstruation delayed [Recovered/Resolved]
  - Lactation insufficiency [Not Recovered/Not Resolved]

NARRATIVE: CASE EVENT DATE: 20231215
